FAERS Safety Report 4998557-5 (Version None)
Quarter: 2006Q2

REPORT INFORMATION
  Report Type: 
  Country: None (occurrence: None)
  Receive Date: 20060508
  Receipt Date: 20060425
  Transmission Date: 20061013
  Serious: Yes (Death)
  Sender: FDA-Public Use
  Company Number: 150-20785-06030774

PATIENT
  Age: 42 Year
  Sex: Male

DRUGS (6)
  1. THALIDOMIDE - PHARMION (THALIDOMIDE) (50 MILLIGRAM, CAPSULES) [Suspect]
     Indication: PYODERMA GANGRENOSUM
     Dosage: 100 MG, QD, ORAL
     Route: 048
  2. TRAMADOL HCL [Concomitant]
  3. PARACETAMOL [Concomitant]
  4. GABAPENTIN [Concomitant]
  5. ACETYLSALICYLIC ACID SRT [Concomitant]
  6. SIMVASTATIN [Concomitant]

REACTIONS (8)
  - CONDITION AGGRAVATED [None]
  - ILEUS [None]
  - INTESTINAL PERFORATION [None]
  - ISCHAEMIA [None]
  - NEUROFIBROMATOSIS [None]
  - PERITONITIS [None]
  - SEPTIC SHOCK [None]
  - SKIN DISORDER [None]
